FAERS Safety Report 4479244-9 (Version None)
Quarter: 2004Q4

REPORT INFORMATION
  Report Type: 
  Country: None (occurrence: None)
  Receive Date: 20041019
  Receipt Date: 20041019
  Transmission Date: 20050328
  Serious: Yes (Hospitalization)
  Sender: FDA-Public Use
  Company Number: None

PATIENT
  Age: 80 Year
  Sex: Male
  Weight: 99 kg

DRUGS (2)
  1. ENALAPRIL [Suspect]
     Indication: HYPERTENSION
     Dosage: 5 MG ORAL
     Route: 048
     Dates: start: 20040414, end: 20040503
  2. TOPROL-XL [Concomitant]

REACTIONS (2)
  - LOCAL SWELLING [None]
  - SWOLLEN TONGUE [None]
